FAERS Safety Report 22266089 (Version 1)
Quarter: 2023Q2

REPORT INFORMATION
  Report Type: Spontaneous
  Country: NL (occurrence: NL)
  Receive Date: 20230428
  Receipt Date: 20230428
  Transmission Date: 20230721
  Serious: Yes (Other)
  Sender: FDA-Public Use
  Company Number: None

PATIENT
  Sex: Female
  Weight: 65 kg

DRUGS (12)
  1. OXAZEPAM [Suspect]
     Active Substance: OXAZEPAM
     Indication: Disinhibition
     Dosage: 1 DD 1 PIECES, BRAND NAME NOT SPECIFIED
     Route: 065
  2. OXAZEPAM [Suspect]
     Active Substance: OXAZEPAM
     Dosage: 1 DD 2 PIECES, BRAND NAME NOT SPECIFIED
     Route: 065
     Dates: start: 20230321, end: 20230321
  3. THERANAL [Concomitant]
     Indication: Product used for unknown indication
     Dosage: FORM STRENGTH : 18/130/27 MG/G (MILLIGRAMS PER GRAM), HEMORRHOID
     Route: 065
  4. OMEPRAZOLE [Concomitant]
     Active Substance: OMEPRAZOLE
     Indication: Product used for unknown indication
     Dosage: BRAND NAME NOT SPECIFIED
     Route: 065
  5. APIXABAN [Concomitant]
     Active Substance: APIXABAN
     Indication: Product used for unknown indication
     Dosage: BRAND NAME NOT SPECIFIED
     Route: 065
  6. LEVETIRACETAM [Concomitant]
     Active Substance: LEVETIRACETAM
     Indication: Product used for unknown indication
     Dosage: BRAND NAME NOT SPECIFIED
     Route: 065
  7. DEXAMETHASONE [Concomitant]
     Active Substance: DEXAMETHASONE
     Indication: Product used for unknown indication
     Dosage: BRAND NAME NOT SPECIFIED
     Route: 065
  8. SODIUM PHOSPHATES ENEMA (CLYSSION) [Concomitant]
     Indication: Product used for unknown indication
     Dosage: KLYSMA, BRAND NAME NOT SPECIFIED
     Route: 065
  9. CALCI CHEW [Concomitant]
     Indication: Product used for unknown indication
     Dosage: FORM STRENGTH : 1.25 G (GRAM), 1.25G (500MG CA)
     Route: 065
  10. POLYETHYLENE GLYCOLS [Concomitant]
     Active Substance: POLYETHYLENE GLYCOLS
     Indication: Product used for unknown indication
     Dosage: BRAND NAME NOT SPECIFIED
     Route: 065
  11. CEFTRIAXONE [Concomitant]
     Active Substance: CEFTRIAXONE
     Indication: Product used for unknown indication
     Dosage: BRAND NAME NOT SPECIFIED
     Route: 065
  12. LETROZOLE [Concomitant]
     Active Substance: LETROZOLE
     Indication: Product used for unknown indication
     Dosage: BRAND NAME NOT SPECIFIED
     Route: 065

REACTIONS (3)
  - Loss of consciousness [Not Recovered/Not Resolved]
  - Respiratory depression [Not Recovered/Not Resolved]
  - Pupillary light reflex tests abnormal [Not Recovered/Not Resolved]
